FAERS Safety Report 19558872 (Version 1)
Quarter: 2021Q3

REPORT INFORMATION
  Report Type: Spontaneous
  Country: US (occurrence: US)
  Receive Date: 20210714
  Receipt Date: 20210714
  Transmission Date: 20211014
  Serious: Yes (Other)
  Sender: FDA-Public Use
  Company Number: US-SK LIFE SCIENCE, INC-SKPVG-2020-000618

PATIENT

DRUGS (2)
  1. XCOPRI [Suspect]
     Active Substance: CENOBAMATE
     Dosage: 100 MILLIGRAM, QD 1 TABLET
     Route: 048
     Dates: start: 2020, end: 20201207
  2. XCOPRI [Suspect]
     Active Substance: CENOBAMATE
     Indication: SEIZURE
     Dosage: 12.5 MG AND 25 MG TABLETS (28?DAY) UNK
     Route: 048
     Dates: start: 20201108

REACTIONS (3)
  - Poor quality sleep [Unknown]
  - Dizziness [Unknown]
  - Suicidal ideation [Recovering/Resolving]

NARRATIVE: CASE EVENT DATE: 2020
